FAERS Safety Report 23757027 (Version 2)
Quarter: 2024Q2

REPORT INFORMATION
  Report Type: Spontaneous
  Country: US (occurrence: US)
  Receive Date: 20240418
  Receipt Date: 20240521
  Transmission Date: 20240716
  Serious: No
  Sender: FDA-Public Use
  Company Number: US-MYLANLABS-2024M1032360

PATIENT
  Sex: Female
  Weight: 59 kg

DRUGS (1)
  1. TYRVAYA [Suspect]
     Active Substance: VARENICLINE TARTRATE
     Indication: Dry eye
     Dosage: 0.03 MILLIGRAM, BID
     Route: 045
     Dates: start: 20240402, end: 20240405

REACTIONS (6)
  - Sleep disorder [Unknown]
  - Cough [Unknown]
  - Throat irritation [Unknown]
  - Heart rate increased [Unknown]
  - Orthostatic hypotension [Unknown]
  - Palpitations [Unknown]

NARRATIVE: CASE EVENT DATE: 20240101
